FAERS Safety Report 9009097 (Version 1)
Quarter: 2013Q1

REPORT INFORMATION
  Report Type: Spontaneous
  Country: FR (occurrence: FR)
  Receive Date: 20130111
  Receipt Date: 20130111
  Transmission Date: 20140127
  Serious: Yes (Disabling)
  Sender: FDA-Public Use
  Company Number: FR-ASTRAZENECA-2013SE01132

PATIENT
  Age: 22 Year
  Sex: Male
  Weight: 63 kg

DRUGS (3)
  1. ZOMIG [Suspect]
     Route: 048
  2. NARAMIG [Suspect]
     Route: 048
  3. ACETYLCYSTEINE [Suspect]
     Route: 045
     Dates: start: 2007, end: 2007

REACTIONS (3)
  - Pulmonary arterial hypertension [Not Recovered/Not Resolved]
  - Cardiac septal hypertrophy [Unknown]
  - Venoocclusive disease [None]
